FAERS Safety Report 8445986-3 (Version None)
Quarter: 2012Q2

REPORT INFORMATION
  Report Type: 
  Country: None (occurrence: None)
  Receive Date: 20120323
  Receipt Date: 20110906
  Transmission Date: 20120825
  Serious: Yes (Hospitalization)
  Sender: FDA-Public Use
  Company Number: 163-21880-11090523

PATIENT
  Age: 68 Year
  Sex: Male
  Weight: 119.296 kg

DRUGS (11)
  1. CYMBALTA [Concomitant]
  2. AMBIEN [Concomitant]
  3. LYRICA [Concomitant]
  4. VITAMIN B12 [Concomitant]
  5. COUMADIN [Concomitant]
  6. OMEPRAZOLE [Concomitant]
  7. LENALIDOMIDE [Suspect]
     Indication: MULTIPLE MYELOMA
     Dosage: 25 MG, QD, PO
     Route: 048
     Dates: start: 20090101
  8. VITAMIN B COMPLEX (B-KOMPLEX ^LECIVA^) [Concomitant]
  9. HYDROCODONE [Concomitant]
  10. VITAMIN D [Concomitant]
  11. FISH OIL [Concomitant]

REACTIONS (1)
  - ASTHENIA [None]
